FAERS Safety Report 12789455 (Version 2)
Quarter: 2016Q4

REPORT INFORMATION
  Report Type: Spontaneous
  Country: US (occurrence: US)
  Receive Date: 20160928
  Receipt Date: 20161011
  Transmission Date: 20170207
  Serious: No
  Sender: FDA-Public Use
  Company Number: US-BRISTOL-MYERS SQUIBB COMPANY-BMS-2016-078033

PATIENT
  Sex: Female

DRUGS (2)
  1. YERVOY [Suspect]
     Active Substance: IPILIMUMAB
     Indication: PRODUCT USED FOR UNKNOWN INDICATION
     Dosage: 541 MG, UNK
     Route: 065
     Dates: start: 20151231
  2. YERVOY [Suspect]
     Active Substance: IPILIMUMAB
     Dosage: 574 MG, UNK
     Route: 065
     Dates: start: 20160601

REACTIONS (1)
  - Fatigue [Unknown]
